FAERS Safety Report 7164401-3 (Version None)
Quarter: 2010Q4

REPORT INFORMATION
  Report Type: 
  Country: None (occurrence: None)
  Receive Date: 20101215
  Receipt Date: 20101203
  Transmission Date: 20110411
  Serious: Yes (Other)
  Sender: FDA-Public Use
  Company Number: US-GENZYME-FLUD-1000516

PATIENT
  Age: 59 Year
  Sex: Female

DRUGS (14)
  1. FLUDARA [Suspect]
     Indication: CHRONIC LYMPHOCYTIC LEUKAEMIA
     Dosage: 25 MG/M2, UNK
     Route: 042
  2. FLUDARA [Suspect]
     Dosage: 25 MG/M2, UNK
     Route: 042
  3. FLUDARA [Suspect]
     Dosage: 25 MG/M2, UNK
     Route: 042
  4. RITUXIMAB [Suspect]
     Indication: CHRONIC LYMPHOCYTIC LEUKAEMIA
     Dosage: 50 MG/M2, UNK
     Route: 065
  5. RITUXIMAB [Suspect]
     Dosage: 325 MG/M2, UNK
     Route: 065
  6. RITUXIMAB [Suspect]
     Dosage: 325 MG/M2, UNK
     Route: 065
  7. RITUXIMAB [Suspect]
     Dosage: 325 MG/M2, UNK
     Route: 065
  8. LENALIDOMIDE [Suspect]
     Indication: CHRONIC LYMPHOCYTIC LEUKAEMIA
     Dosage: 2.5 MG, UNK
     Route: 065
  9. LENALIDOMIDE [Suspect]
     Dosage: UNK MG, UNK
     Route: 065
  10. LENALIDOMIDE [Suspect]
     Dosage: UNK MG, UNK
     Route: 065
  11. TRIMETHOPRIM + SULFAMETHOXAZOLE [Concomitant]
     Indication: INFECTION PROPHYLAXIS
     Dosage: UNK
     Route: 065
  12. ACYCLOVIR SODIUM [Concomitant]
     Indication: INFECTION PROPHYLAXIS
     Dosage: UNK
     Route: 065
  13. ALLOPURINOL [Concomitant]
     Indication: PRODUCT USED FOR UNKNOWN INDICATION
     Dosage: UNK
     Route: 065
  14. I.V. SOLUTIONS [Concomitant]
     Indication: FLUID REPLACEMENT
     Dosage: UNK
     Route: 065

REACTIONS (4)
  - NEUTROPENIA [None]
  - PALMAR-PLANTAR ERYTHRODYSAESTHESIA SYNDROME [None]
  - RASH [None]
  - TUMOUR FLARE [None]
